FAERS Safety Report 22268138 (Version 1)
Quarter: 2023Q2

REPORT INFORMATION
  Report Type: Spontaneous
  Country: US (occurrence: None)
  Receive Date: 20230427
  Receipt Date: 20230427
  Transmission Date: 20230722
  Serious: No
  Sender: FDA-Public Use
  Company Number: None

PATIENT
  Sex: Female

DRUGS (1)
  1. HUMIRA [Suspect]
     Active Substance: ADALIMUMAB
     Indication: Crohn^s disease
     Dosage: 40MG EVERY 14 DAYS SUBCUTANEOUSLY?
     Route: 058
     Dates: start: 20230409

REACTIONS (6)
  - Drug ineffective [None]
  - Middle insomnia [None]
  - Pain [None]
  - Discomfort [None]
  - Asthenia [None]
  - Decreased activity [None]
